FAERS Safety Report 4811258-9 (Version None)
Quarter: 2005Q4

REPORT INFORMATION
  Report Type: 
  Country: None (occurrence: None)
  Receive Date: 20051027
  Receipt Date: 20051017
  Transmission Date: 20060501
  Serious: Yes (Hospitalization)
  Sender: FDA-Public Use
  Company Number: US-BRISTOL-MYERS SQUIBB COMPANY-13148077

PATIENT
  Age: 30 Year
  Sex: Male

DRUGS (4)
  1. REYATAZ [Suspect]
     Indication: HIV INFECTION
  2. SUSTIVA [Concomitant]
  3. RITONAVIR [Concomitant]
  4. TRUVADA [Concomitant]

REACTIONS (3)
  - GALLBLADDER DISORDER [None]
  - LIPASE INCREASED [None]
  - PANCREATITIS [None]
